FAERS Safety Report 5509642-3 (Version None)
Quarter: 2007Q4

REPORT INFORMATION
  Report Type: 
  Country: None (occurrence: None)
  Receive Date: 20071108
  Receipt Date: 20071029
  Transmission Date: 20080405
  Serious: Yes (Other)
  Sender: FDA-Public Use
  Company Number: PHBS2007BR18041

PATIENT

DRUGS (8)
  1. ZELNORM [Suspect]
     Indication: ABDOMINAL PAIN UPPER
     Dosage: 6MG
     Route: 048
     Dates: start: 20060101
  2. EUTHYROX [Concomitant]
     Indication: HYPOTHYROIDISM
     Dosage: 75 MG, QD
     Route: 048
  3. RIVOTRIL [Concomitant]
     Indication: DEPRESSION
     Dosage: 2 MG, BID
     Route: 048
  4. FLUOXETINE [Concomitant]
     Indication: DEPRESSION
     Dosage: 20MG, QD
     Route: 048
  5. TIBOLONE [Concomitant]
     Indication: HORMONE REPLACEMENT THERAPY
     Dosage: 2.5MG, QD
  6. DILACORON [Concomitant]
     Indication: ANGINA PECTORIS
     Dosage: 120MG, Q12H
     Route: 048
  7. NICOTINIC ACID [Concomitant]
     Indication: HIGH DENSITY LIPOPROTEIN DECREASED
     Dosage: UNK, QD
     Route: 048
  8. SUSTRATE [Concomitant]
     Indication: ANGINA PECTORIS
     Dosage: UNK, PRN
     Route: 048

REACTIONS (9)
  - ABDOMINAL PAIN UPPER [None]
  - ANGINA PECTORIS [None]
  - ARTERIAL CATHETERISATION [None]
  - ARTERIAL OCCLUSIVE DISEASE [None]
  - BURNING SENSATION [None]
  - GASTRITIS [None]
  - HIGH DENSITY LIPOPROTEIN DECREASED [None]
  - SWELLING [None]
  - THROAT IRRITATION [None]
